FAERS Safety Report 23846616 (Version 1)
Quarter: 2024Q2

REPORT INFORMATION
  Report Type: Other
  Country: US (occurrence: US)
  Receive Date: 20240513
  Receipt Date: 20240513
  Transmission Date: 20240716
  Serious: No
  Sender: FDA-Public Use
  Company Number: US-APOTEX-2024AP005401

PATIENT

DRUGS (1)
  1. FLUTICASONE PROPIONATE [Suspect]
     Active Substance: FLUTICASONE PROPIONATE
     Indication: Product used for unknown indication
     Dosage: UNK
     Route: 045

REACTIONS (8)
  - Sinusitis [Not Recovered/Not Resolved]
  - Nasal injury [Not Recovered/Not Resolved]
  - Rhinalgia [Not Recovered/Not Resolved]
  - Recalled product [Unknown]
  - Recalled product administered [Unknown]
  - Impaired healing [Not Recovered/Not Resolved]
  - Epistaxis [Not Recovered/Not Resolved]
  - Nasal discomfort [Not Recovered/Not Resolved]

NARRATIVE: CASE EVENT DATE: 20240101
